FAERS Safety Report 7634737-8 (Version None)
Quarter: 2011Q3

REPORT INFORMATION
  Report Type: 
  Country: None (occurrence: None)
  Receive Date: 20110726
  Receipt Date: 20110715
  Transmission Date: 20111222
  Serious: Yes (Hospitalization)
  Sender: FDA-Public Use
  Company Number: US-BIOGENIDEC-2011BI019938

PATIENT
  Age: 23 Year
  Sex: Male

DRUGS (2)
  1. DILANTIN [Concomitant]
     Indication: CONVULSION
  2. TYSABRI [Suspect]
     Indication: MULTIPLE SCLEROSIS
     Route: 042
     Dates: start: 20080623

REACTIONS (2)
  - CONVULSION [None]
  - CENTRAL NERVOUS SYSTEM LESION [None]
